FAERS Safety Report 10089567 (Version 3)
Quarter: 2014Q2

REPORT INFORMATION
  Report Type: Report from Study
  Country: AU (occurrence: AU)
  Receive Date: 20140421
  Receipt Date: 20140521
  Transmission Date: 20141212
  Serious: Yes (Death, Hospitalization, Other)
  Sender: FDA-Public Use
  Company Number: PHHY2014AU047975

PATIENT
  Age: 46 Year
  Sex: Male

DRUGS (1)
  1. CLOZARIL [Suspect]
     Dosage: 500 MG
     Dates: start: 19931026

REACTIONS (3)
  - Cerebrovascular accident [Fatal]
  - Transient ischaemic attack [Unknown]
  - Circulatory collapse [Unknown]
